FAERS Safety Report 25111040 (Version 1)
Quarter: 2025Q1

REPORT INFORMATION
  Report Type: Spontaneous
  Country: US (occurrence: US)
  Receive Date: 20250324
  Receipt Date: 20250324
  Transmission Date: 20250409
  Serious: No
  Sender: TAKEDA
  Company Number: US-TAKEDA-2025TUS029233

PATIENT
  Sex: Female

DRUGS (3)
  1. TAKHZYRO [Suspect]
     Active Substance: LANADELUMAB-FLYO
     Indication: Angioedema
     Dosage: 300 MILLIGRAM, Q3WEEKS
  2. TAKHZYRO [Suspect]
     Active Substance: LANADELUMAB-FLYO
  3. TAKHZYRO [Suspect]
     Active Substance: LANADELUMAB-FLYO

REACTIONS (1)
  - Off label use [Unknown]
